FAERS Safety Report 8934418 (Version 5)
Quarter: 2013Q4

REPORT INFORMATION
  Report Type: Spontaneous
  Country: US (occurrence: US)
  Receive Date: 20121128
  Receipt Date: 20131125
  Transmission Date: 20140711
  Serious: Yes (Hospitalization, Disabling, Other)
  Sender: FDA-Public Use
  Company Number: US-009507513-1211USA011541

PATIENT
  Sex: Female
  Weight: 90.7 kg

DRUGS (5)
  1. FOSAMAX [Suspect]
     Indication: OSTEOPOROSIS
     Dosage: 70 MG, QW
     Route: 048
     Dates: start: 200012
  2. ALENDRONATE SODIUM [Suspect]
     Indication: OSTEOPOROSIS
     Dosage: 70 MG, QW
     Route: 048
     Dates: start: 200803, end: 201111
  3. HORMONES (UNSPECIFIED) [Concomitant]
     Dosage: UNK
     Dates: start: 2000, end: 2000
  4. TUMS [Concomitant]
     Dosage: UNK
     Dates: start: 2000, end: 201202
  5. VITAMIN D (UNSPECIFIED) [Concomitant]
     Dosage: 50000 - 100,000 IU, QW
     Dates: start: 2000, end: 2012

REACTIONS (39)
  - Femur fracture [Not Recovered/Not Resolved]
  - Intramedullary rod insertion [Unknown]
  - Pathological fracture [Not Recovered/Not Resolved]
  - Parathyroidectomy [Unknown]
  - Thyroid operation [Unknown]
  - Osteoporosis [Not Recovered/Not Resolved]
  - Femur fracture [Not Recovered/Not Resolved]
  - Femur fracture [Not Recovered/Not Resolved]
  - Intramedullary rod insertion [Unknown]
  - Breast prosthesis implantation [Unknown]
  - Contusion [Unknown]
  - Foot fracture [Unknown]
  - Tachycardia [Unknown]
  - Anaemia [Unknown]
  - Atelectasis [Unknown]
  - Dyspnoea [Unknown]
  - Agitation [Unknown]
  - Cataract [Unknown]
  - Procedural pain [Unknown]
  - Asthma [Unknown]
  - Anxiety [Unknown]
  - Osteopenia [Unknown]
  - Spinal deformity [Unknown]
  - Intervertebral disc space narrowing [Unknown]
  - Stomatitis [Unknown]
  - Fatigue [Unknown]
  - Osteoarthritis [Unknown]
  - Rosacea [Unknown]
  - Cataract operation [Unknown]
  - Device breakage [Unknown]
  - Hyperaemia [Unknown]
  - Hypercalcaemia [Unknown]
  - Pleural effusion [Unknown]
  - Electrocardiogram ST-T change [Unknown]
  - Injury [Unknown]
  - Drug intolerance [Unknown]
  - Haemarthrosis [Unknown]
  - Anaemia [Unknown]
  - Oedema peripheral [Unknown]
